FAERS Safety Report 22258004 (Version 1)
Quarter: 2023Q2

REPORT INFORMATION
  Report Type: Spontaneous
  Country: CA (occurrence: CA)
  Receive Date: 20230427
  Receipt Date: 20230427
  Transmission Date: 20230722
  Serious: Yes (Hospitalization, Disabling, Other)
  Sender: FDA-Public Use
  Company Number: CA-002147023-NVSC2023CA091811

PATIENT
  Age: 84 Year
  Sex: Male
  Weight: 83 kg

DRUGS (9)
  1. CEFTRIAXONE [Suspect]
     Active Substance: CEFTRIAXONE
     Indication: Wound infection pseudomonas
     Dosage: UNK
     Route: 042
  2. GENTAMICIN [Suspect]
     Active Substance: GENTAMICIN
     Indication: Wound infection pseudomonas
     Dosage: 160 MG, QD (1 EVERY 1 DAYS)
     Route: 042
  3. CIPROFLOXACIN LACTATE [Suspect]
     Active Substance: CIPROFLOXACIN LACTATE
     Indication: Wound infection staphylococcal
     Dosage: UNK
     Route: 065
  4. CIPROFLOXACIN LACTATE [Suspect]
     Active Substance: CIPROFLOXACIN LACTATE
     Indication: Wound infection pseudomonas
     Dosage: 500 MG, Q12H (1 EVERY 12 HOURS)
     Route: 048
  5. CIPROFLOXACIN LACTATE [Suspect]
     Active Substance: CIPROFLOXACIN LACTATE
     Indication: Beta haemolytic streptococcal infection
     Dosage: UNK
     Route: 065
  6. ERTAPENEM [Suspect]
     Active Substance: ERTAPENEM
     Indication: Wound infection staphylococcal
     Dosage: UNK
     Route: 065
  7. ERTAPENEM [Suspect]
     Active Substance: ERTAPENEM
     Indication: Wound infection pseudomonas
     Dosage: UNK
     Route: 065
  8. ERTAPENEM [Suspect]
     Active Substance: ERTAPENEM
     Indication: Beta haemolytic streptococcal infection
     Dosage: 1 G, QD (1 EVERY 1 DAYS)
     Route: 042
  9. METRONIDAZOLE [Concomitant]
     Active Substance: METRONIDAZOLE
     Indication: Peptostreptococcus infection
     Dosage: 500 MG, Q12H (1 EVERY 12 HOURS)
     Route: 048

REACTIONS (2)
  - Osteomyelitis [Unknown]
  - Pathogen resistance [Unknown]
